FAERS Safety Report 25265578 (Version 1)
Quarter: 2025Q2

REPORT INFORMATION
  Report Type: Spontaneous
  Country: IN (occurrence: IN)
  Receive Date: 20250502
  Receipt Date: 20250502
  Transmission Date: 20250716
  Serious: Yes (Other)
  Sender: PRINSTON PHARMACEUTICAL
  Company Number: IN-PRINSTON PHARMACEUTICAL INC.-2025PRN00150

PATIENT
  Sex: Male

DRUGS (2)
  1. SILODOSIN [Suspect]
     Active Substance: SILODOSIN
     Indication: Urinary tract infection
     Route: 065
  2. SILODOSIN [Suspect]
     Active Substance: SILODOSIN
     Indication: Prostatomegaly

REACTIONS (1)
  - Erectile dysfunction [Unknown]
